FAERS Safety Report 15454399 (Version 1)
Quarter: 2018Q4

REPORT INFORMATION
  Report Type: Report from Study
  Country: US (occurrence: US)
  Receive Date: 20181002
  Receipt Date: 20181002
  Transmission Date: 20190204
  Serious: Yes (Hospitalization)
  Sender: FDA-Public Use
  Company Number: US-ASTRAZENECA-2018SF17330

PATIENT
  Age: 25917 Day
  Sex: Female

DRUGS (19)
  1. SENNA [Concomitant]
     Active Substance: SENNA LEAF\SENNOSIDES\SENNOSIDES A AND B
  2. VITAMIN B COMPLEX [Concomitant]
     Active Substance: CYANOCOBALAMIN\DEXPANTHENOL\NIACINAMIDE\PYRIDOXINE HYDROCHLORIDE\RIBOFLAVIN 5^-PHOSPHATE SODIUM\THIAMINE HYDROCHLORIDE\VITAMIN B COMPLEX
  3. ZINC. [Concomitant]
     Active Substance: ZINC
  4. AVASTIN [Concomitant]
     Active Substance: BEVACIZUMAB
  5. SELENIUM [Concomitant]
     Active Substance: SELENIUM
  6. LYNPARZA [Suspect]
     Active Substance: OLAPARIB
     Indication: OVARIAN CANCER
     Route: 048
     Dates: start: 20180828, end: 20180910
  7. LYNPARZA [Suspect]
     Active Substance: OLAPARIB
     Indication: OVARIAN CANCER
     Route: 048
     Dates: start: 20180910, end: 20180912
  8. COLACE [Concomitant]
     Active Substance: DOCUSATE SODIUM
  9. CRANBERRY. [Concomitant]
     Active Substance: CRANBERRY
  10. MILK THISTLE [Concomitant]
     Active Substance: DIETARY SUPPLEMENT\HERBALS\MILK THISTLE
  11. PROBIOTIC [Concomitant]
     Active Substance: PROBIOTICS NOS
  12. VITAMIN D3 [Concomitant]
     Active Substance: CHOLECALCIFEROL
  13. COQ10 [Concomitant]
     Active Substance: UBIDECARENONE
  14. CURCUMIN [Concomitant]
     Active Substance: CURCUMIN
  15. VITAMIN C [Concomitant]
     Active Substance: ASCORBIC ACID
  16. GARLIC. [Concomitant]
     Active Substance: GARLIC
  17. VITAMIN K [Concomitant]
     Active Substance: PHYTONADIONE
  18. FIBER [Concomitant]
     Active Substance: PSYLLIUM HUSK
  19. OMEGA [Concomitant]
     Active Substance: CONVALLARIA MAJALIS\CRATAEGUS LAEVIGATA LEAF\PROXYPHYLLINE

REACTIONS (7)
  - Constipation [Unknown]
  - Gastrooesophageal reflux disease [Unknown]
  - Abdominal pain upper [Unknown]
  - Nausea [Unknown]
  - Muscle spasms [Unknown]
  - Abdominal discomfort [Unknown]
  - Vision blurred [Unknown]

NARRATIVE: CASE EVENT DATE: 20180917
